FAERS Safety Report 17165711 (Version 1)
Quarter: 2019Q4

REPORT INFORMATION
  Report Type: Spontaneous
  Country: US (occurrence: US)
  Receive Date: 20191217
  Receipt Date: 20191217
  Transmission Date: 20200122
  Serious: Yes (Hospitalization, Disabling, Other)
  Sender: FDA-Public Use
  Company Number: US-JNJFOC-20191211445

PATIENT
  Age: 56 Year
  Sex: Male

DRUGS (2)
  1. INVOKANA [Suspect]
     Active Substance: CANAGLIFLOZIN
     Indication: DIABETES MELLITUS
     Route: 048
     Dates: start: 20140121
  2. INVOKANA [Suspect]
     Active Substance: CANAGLIFLOZIN
     Route: 048
     Dates: start: 20150317

REACTIONS (5)
  - Cellulitis [Unknown]
  - Leg amputation [Unknown]
  - Osteomyelitis [Unknown]
  - Ischaemic skin ulcer [Unknown]
  - Gas gangrene [Unknown]

NARRATIVE: CASE EVENT DATE: 20150725
